FAERS Safety Report 8581933-1 (Version None)
Quarter: 2012Q3

REPORT INFORMATION
  Report Type: 
  Country: None (occurrence: None)
  Receive Date: 20120801
  Receipt Date: 20120801
  Transmission Date: 20120928
  Serious: Yes (Other)
  Sender: FDA-Public Use
  Company Number: None

PATIENT
  Sex: Female

DRUGS (3)
  1. COGENTIN [Suspect]
     Indication: DEPRESSION
     Dosage: CONGENTIN 7MG 2/DAY MOUTH
     Route: 048
     Dates: start: 20120724, end: 20120730
  2. DEPAKOTE [Suspect]
     Dosage: DEPAKOTE 500 MG 1/DAY MOUTH
     Route: 048
     Dates: start: 20120724, end: 20120730
  3. ABILIFY [Suspect]
     Dosage: 1/DAY MOUTH
     Route: 048

REACTIONS (2)
  - ABDOMINAL PAIN UPPER [None]
  - ABDOMINAL PAIN [None]
